FAERS Safety Report 8218943-X (Version None)
Quarter: 2012Q1

REPORT INFORMATION
  Report Type: 
  Country: None (occurrence: None)
  Receive Date: 20120306
  Receipt Date: 20110822
  Transmission Date: 20120608
  Serious: Yes (Hospitalization)
  Sender: FDA-Public Use
  Company Number: US-006676

PATIENT
  Age: 74 Year
  Sex: Female
  Weight: 64.5 kg

DRUGS (2)
  1. ISOVUE-370 [Suspect]
     Indication: COMPUTERISED TOMOGRAM
     Dosage: 100ML INTRAVENOUS
     Route: 042
     Dates: start: 20110818, end: 20110818
  2. ISOVUE-370 [Suspect]
     Indication: NODULE
     Dosage: 100ML INTRAVENOUS
     Route: 042
     Dates: start: 20110818, end: 20110818

REACTIONS (1)
  - CIRCULATORY COLLAPSE [None]
